FAERS Safety Report 22027350 (Version 1)
Quarter: 2023Q1

REPORT INFORMATION
  Report Type: Spontaneous
  Country: US (occurrence: None)
  Receive Date: 20230223
  Receipt Date: 20230223
  Transmission Date: 20230417
  Serious: No
  Sender: FDA-Public Use
  Company Number: US-ROCHE-3222047

PATIENT
  Age: 56 Year
  Sex: Female

DRUGS (7)
  1. XOLAIR [Suspect]
     Active Substance: OMALIZUMAB
     Indication: Product used for unknown indication
     Route: 065
  2. TACROLIMUS [Suspect]
     Active Substance: TACROLIMUS
     Indication: Inflammation
     Route: 065
     Dates: start: 20221103, end: 20221110
  3. TACROLIMUS [Suspect]
     Active Substance: TACROLIMUS
     Indication: Eczema
  4. ALLEGRA [Concomitant]
     Active Substance: FEXOFENADINE HYDROCHLORIDE
  5. ZYRTEC [Concomitant]
     Active Substance: CETIRIZINE HYDROCHLORIDE
  6. DOXEPIN [Concomitant]
     Active Substance: DOXEPIN
  7. PEPCID AC [Concomitant]
     Active Substance: FAMOTIDINE

REACTIONS (8)
  - Pruritus [Unknown]
  - Rash [Unknown]
  - Skin irritation [Unknown]
  - Hyperaesthesia [Unknown]
  - Sunburn [Unknown]
  - Thermal burn [Unknown]
  - Condition aggravated [Unknown]
  - Pain [Unknown]
